FAERS Safety Report 21223950 (Version 11)
Quarter: 2022Q4

REPORT INFORMATION
  Report Type: Spontaneous
  Country: US (occurrence: US)
  Receive Date: 20220817
  Receipt Date: 20221215
  Transmission Date: 20230112
  Serious: Yes (Hospitalization, Other)
  Sender: FDA-Public Use
  Company Number: US-DSJP-DSU-2022-128498AA

PATIENT
  Sex: Female

DRUGS (6)
  1. TURALIO [Suspect]
     Active Substance: PEXIDARTINIB HYDROCHLORIDE
     Indication: Histiocytosis
     Dosage: 400MG DAILY
     Route: 048
     Dates: start: 20220804
  2. TURALIO [Suspect]
     Active Substance: PEXIDARTINIB HYDROCHLORIDE
     Indication: Langerhans^ cell histiocytosis
     Dosage: 200 MG, QD
     Route: 048
  3. TURALIO [Suspect]
     Active Substance: PEXIDARTINIB HYDROCHLORIDE
     Dosage: 200 MG, QD
     Route: 048
     Dates: start: 20220808, end: 2022
  4. AMITRIPTYLINE [Concomitant]
     Active Substance: AMITRIPTYLINE
     Indication: Product used for unknown indication
     Dosage: 50 MG ONCE DAILY
     Route: 048
  5. GABAPENTIN [Concomitant]
     Active Substance: GABAPENTIN
     Indication: Product used for unknown indication
     Dosage: UNK
     Route: 065
  6. AMINO ACIDS\CARBOHYDRATES\MINERALS\VITAMINS [Concomitant]
     Active Substance: AMINO ACIDS\CARBOHYDRATES\MINERALS\VITAMINS
     Indication: Product used for unknown indication
     Dosage: 16 HOURS PER DAY
     Route: 048

REACTIONS (40)
  - Heart rate irregular [Not Recovered/Not Resolved]
  - Diarrhoea [Recovered/Resolved]
  - Pain [Recovered/Resolved]
  - Haematochezia [Recovered/Resolved]
  - Dehydration [Unknown]
  - Vomiting [Recovered/Resolved]
  - Fatigue [Unknown]
  - Lethargy [Unknown]
  - Insomnia [Unknown]
  - Feeling abnormal [Recovered/Resolved]
  - Adverse drug reaction [Recovered/Resolved]
  - Nausea [Recovered/Resolved]
  - Abdominal discomfort [Not Recovered/Not Resolved]
  - Amnesia [Recovered/Resolved]
  - Alopecia [Not Recovered/Not Resolved]
  - Hypoaesthesia [Not Recovered/Not Resolved]
  - Pain in extremity [Recovered/Resolved]
  - Restless legs syndrome [Not Recovered/Not Resolved]
  - Alopecia [Recovered/Resolved]
  - Nausea [Recovered/Resolved]
  - Vomiting [Recovered/Resolved]
  - Pain [Recovered/Resolved]
  - Diarrhoea [Recovered/Resolved]
  - Feeling abnormal [Recovered/Resolved]
  - Amnesia [Recovered/Resolved]
  - Off label use [Unknown]
  - Product dose omission issue [Recovered/Resolved]
  - Hair colour changes [Recovered/Resolved]
  - Abdominal pain [Recovered/Resolved]
  - Diarrhoea [Recovered/Resolved]
  - Fatigue [Recovered/Resolved]
  - Arthralgia [Recovered/Resolved]
  - Abdominal pain upper [Not Recovered/Not Resolved]
  - Product dose omission in error [Not Recovered/Not Resolved]
  - Emotional distress [Not Recovered/Not Resolved]
  - Memory impairment [Not Recovered/Not Resolved]
  - Complication associated with device [Not Recovered/Not Resolved]
  - Adverse event [Not Recovered/Not Resolved]
  - Hair colour changes [Unknown]
  - Feeling abnormal [Unknown]

NARRATIVE: CASE EVENT DATE: 20220101
